FAERS Safety Report 7649720-6 (Version None)
Quarter: 2011Q3

REPORT INFORMATION
  Report Type: 
  Country: None (occurrence: None)
  Receive Date: 20110802
  Receipt Date: 20110727
  Transmission Date: 20111222
  Serious: Yes (Hospitalization)
  Sender: FDA-Public Use
  Company Number: JP-ABBOTT-11P-087-0731015-00

PATIENT
  Sex: Female
  Weight: 46.7 kg

DRUGS (11)
  1. CLARITHROMYCIN [Suspect]
     Indication: UPPER RESPIRATORY TRACT INFLAMMATION
     Route: 048
     Dates: start: 20110526, end: 20110529
  2. NAUZELIN [Concomitant]
     Indication: ENTEROCOLITIS
     Route: 048
     Dates: start: 20110528, end: 20110529
  3. PYRINAZIN [Concomitant]
     Indication: UPPER RESPIRATORY TRACT INFLAMMATION
     Route: 048
     Dates: start: 20110526, end: 20110529
  4. GARENOXACIN MESYLATE [Suspect]
     Indication: UPPER RESPIRATORY TRACT INFLAMMATION
     Route: 048
     Dates: start: 20110527, end: 20110528
  5. MUCOSIL-10 [Concomitant]
     Indication: UPPER RESPIRATORY TRACT INFLAMMATION
     Route: 048
     Dates: start: 20110526, end: 20110529
  6. IMIPENEM AND CILASTATIN SODIUM [Suspect]
     Indication: UPPER RESPIRATORY TRACT INFLAMMATION
     Route: 042
     Dates: start: 20110527, end: 20110527
  7. CELESTAMINE TAB [Concomitant]
     Indication: ERYTHEMA MULTIFORME
     Route: 048
     Dates: start: 20110528, end: 20110529
  8. ALLEGRA [Concomitant]
     Indication: UPPER RESPIRATORY TRACT INFLAMMATION
     Route: 048
     Dates: start: 20110526, end: 20110529
  9. BIOFORMIN [Concomitant]
     Indication: ENTEROCOLITIS
     Route: 048
     Dates: start: 20110528, end: 20110529
  10. LORFENAMIN [Concomitant]
     Indication: UPPER RESPIRATORY TRACT INFLAMMATION
     Route: 048
     Dates: start: 20110526, end: 20110529
  11. HUSCODE [Concomitant]
     Indication: UPPER RESPIRATORY TRACT INFLAMMATION
     Dates: start: 20110526, end: 20110529

REACTIONS (5)
  - GASTROENTERITIS [None]
  - DIARRHOEA [None]
  - HEPATIC FUNCTION ABNORMAL [None]
  - ERYTHEMA MULTIFORME [None]
  - CHOLECYSTITIS [None]
